FAERS Safety Report 18207741 (Version 2)
Quarter: 2020Q3

REPORT INFORMATION
  Report Type: Spontaneous
  Country: US (occurrence: US)
  Receive Date: 20200828
  Receipt Date: 20200928
  Transmission Date: 20201103
  Serious: No
  Sender: FDA-Public Use
  Company Number: US-PFIZER INC-2020334254

PATIENT
  Age: 56 Year
  Sex: Female

DRUGS (1)
  1. IBRANCE [Suspect]
     Active Substance: PALBOCICLIB
     Indication: BREAST CANCER METASTATIC
     Dosage: 125 MG, CYCLIC (ONCE DAILY FOR 21D OF EVERY 28D CYCLE)
     Route: 048
     Dates: start: 20200706

REACTIONS (3)
  - Nausea [Unknown]
  - Alopecia [Unknown]
  - Hot flush [Unknown]

NARRATIVE: CASE EVENT DATE: 2020
